FAERS Safety Report 24043846 (Version 1)
Quarter: 2024Q3

REPORT INFORMATION
  Report Type: Spontaneous
  Country: JP (occurrence: JP)
  Receive Date: 20240703
  Receipt Date: 20240703
  Transmission Date: 20241016
  Serious: Yes (Hospitalization)
  Sender: JOHNSON AND JOHNSON
  Company Number: JP-JNJFOC-A-CH2016-136600

PATIENT
  Age: 73 Year
  Sex: Female
  Weight: 55.8 kg

DRUGS (8)
  1. TRACLEER [Suspect]
     Active Substance: BOSENTAN
     Indication: Skin ulcer
     Dosage: 62.5 MG, BID
     Route: 048
     Dates: start: 20160505, end: 20160526
  2. PREDNISOLONE [Concomitant]
     Active Substance: PREDNISOLONE
     Indication: Rheumatoid arthritis
     Dosage: 30-50MG
     Route: 048
     Dates: start: 20160501
  3. BERAPROST [Concomitant]
     Active Substance: BERAPROST
     Indication: Skin ulcer
     Dosage: 20-40MG
     Route: 048
     Dates: start: 20160420
  4. TOCOPHEROL [Concomitant]
     Active Substance: TOCOPHEROL
     Indication: Skin ulcer
     Route: 048
     Dates: start: 20160420
  5. SARPOGRELATE [Concomitant]
     Active Substance: SARPOGRELATE
     Indication: Skin ulcer
     Route: 048
     Dates: start: 20160420
  6. ROSUVASTATIN [Concomitant]
     Active Substance: ROSUVASTATIN
     Indication: Hyperlipidaemia
     Route: 048
     Dates: start: 20160420
  7. AMLODIPINE BESILAATE SANDOZ [Concomitant]
     Indication: Hypertension
     Route: 048
     Dates: start: 20160420
  8. VILDAGLIPTIN [Concomitant]
     Active Substance: VILDAGLIPTIN
     Indication: Steroid diabetes
     Route: 048
     Dates: start: 20160502

REACTIONS (2)
  - Platelet count decreased [Recovered/Resolved]
  - Gamma-glutamyltransferase increased [Recovering/Resolving]

NARRATIVE: CASE EVENT DATE: 20160509
